FAERS Safety Report 20651325 (Version 1)
Quarter: 2022Q1

REPORT INFORMATION
  Report Type: Spontaneous
  Country: FR (occurrence: None)
  Receive Date: 20220330
  Receipt Date: 20220330
  Transmission Date: 20220423
  Serious: Yes (Hospitalization, Other)
  Sender: FDA-Public Use
  Company Number: FR-ADVANZ PHARMA-202107005192

PATIENT

DRUGS (8)
  1. RASILEZ [Suspect]
     Active Substance: ALISKIREN
     Indication: Product used for unknown indication
     Dosage: NOT PROVIDED
  2. BISOPROLOL FUMARATE [Suspect]
     Active Substance: BISOPROLOL FUMARATE
     Indication: Hypertension
     Route: 002
     Dates: start: 20210122
  3. CARBIMAZOLE [Suspect]
     Active Substance: CARBIMAZOLE
     Indication: Hyperthyroidism
     Route: 002
     Dates: start: 20210115
  4. RAMIPRIL [Suspect]
     Active Substance: RAMIPRIL
     Indication: Product used for unknown indication
     Route: 002
     Dates: start: 20210122
  5. LANSOPRAZOLE [Concomitant]
     Active Substance: LANSOPRAZOLE
     Indication: Product used for unknown indication
     Dosage: 30 MG
  6. TRANXENE [Concomitant]
     Active Substance: CLORAZEPATE DIPOTASSIUM
     Indication: Product used for unknown indication
     Dosage: NOT PROVIDED
  7. KARDEGIC [Concomitant]
     Active Substance: ASPIRIN DL-LYSINE
     Indication: Product used for unknown indication
     Dosage: 75 MG
  8. PREVISCAN [Concomitant]
     Indication: Product used for unknown indication
     Dosage: 20 MG

REACTIONS (1)
  - Systemic lupus erythematosus [Recovering/Resolving]

NARRATIVE: CASE EVENT DATE: 20210706
